FAERS Safety Report 5287186-4 (Version None)
Quarter: 2007Q1

REPORT INFORMATION
  Report Type: 
  Country: None (occurrence: None)
  Receive Date: 20070330
  Receipt Date: 20070320
  Transmission Date: 20070707
  Serious: Yes (Life-Threatening, Other)
  Sender: FDA-Public Use
  Company Number: 011908

PATIENT
  Sex: Female

DRUGS (1)
  1. ADDERALL 10 [Suspect]

REACTIONS (4)
  - HOMICIDE [None]
  - MENTAL DISORDER [None]
  - SKIN LACERATION [None]
  - SUICIDE ATTEMPT [None]
